FAERS Safety Report 9559506 (Version 1)
Quarter: 2013Q3

REPORT INFORMATION
  Report Type: Spontaneous
  Country: US (occurrence: None)
  Receive Date: 20130924
  Receipt Date: 20130924
  Transmission Date: 20140515
  Serious: Yes (Other)
  Sender: FDA-Public Use
  Company Number: 1901558

PATIENT
  Sex: Female

DRUGS (7)
  1. KETAMINE HYDROCHLORIDE [Suspect]
     Indication: PREOPERATIVE CARE
     Route: 041
  2. KETAMINE HYDROCHLORIDE [Suspect]
     Indication: ANALGESIC THERAPY
     Route: 041
  3. LIDOCAINE HYDROCHLORIDE [Suspect]
     Indication: PREOPERATIVE CARE
     Route: 041
  4. LIDOCAINE HYDROCHLORIDE [Suspect]
     Indication: ANALGESIC THERAPY
     Route: 041
  5. MAGNESIUM SULFATE [Suspect]
     Indication: PREOPERATIVE CARE
     Route: 040
  6. MAGNESIUM SULFATE [Suspect]
     Indication: ANALGESIC THERAPY
     Route: 040
  7. HETASTARCH [Concomitant]

REACTIONS (5)
  - Hepatic haemorrhage [None]
  - Platelet aggregation inhibition [None]
  - Procedural complication [None]
  - Haematocrit decreased [None]
  - Post procedural complication [None]
